FAERS Safety Report 12482565 (Version 4)
Quarter: 2018Q2

REPORT INFORMATION
  Report Type: Report from Study
  Country: DE (occurrence: DE)
  Receive Date: 20160620
  Receipt Date: 20180515
  Transmission Date: 20180711
  Serious: Yes (Death, Other)
  Sender: FDA-Public Use
  Company Number: DE-CELGENEUS-DEU-2015082130

PATIENT

DRUGS (1)
  1. AZACITIDINE INJECTABLE [Suspect]
     Active Substance: AZACITIDINE
     Indication: ACUTE MYELOID LEUKAEMIA
     Dosage: 75 MILLIGRAM/SQ. METER
     Route: 058

REACTIONS (14)
  - Dermatitis [Unknown]
  - Haemorrhage [Unknown]
  - Blood bilirubin increased [Unknown]
  - Infection [Unknown]
  - Leukocytosis [Unknown]
  - Pneumonia viral [Unknown]
  - Adverse event [Unknown]
  - Blood creatinine increased [Unknown]
  - Nausea [Unknown]
  - Death [Fatal]
  - Constipation [Unknown]
  - Pyrexia [Unknown]
  - Diarrhoea [Unknown]
  - Respiratory disorder [Unknown]
